FAERS Safety Report 9272316 (Version 1)
Quarter: 2013Q2

REPORT INFORMATION
  Report Type: Spontaneous
  Country: US (occurrence: US)
  Receive Date: 20130506
  Receipt Date: 20130506
  Transmission Date: 20140414
  Serious: No
  Sender: FDA-Public Use
  Company Number: US-ASTRAZENECA-2013SE08523

PATIENT
  Sex: Female

DRUGS (5)
  1. PRILOSEC OTC [Suspect]
     Indication: DYSPEPSIA
     Route: 048
     Dates: start: 20130129
  2. SINGULAIR [Concomitant]
  3. SYNTHROID [Concomitant]
  4. ESTRADIOL [Concomitant]
     Dosage: 0.5 G, 3 /WEEK
  5. INHALER PRN [Concomitant]

REACTIONS (1)
  - Migraine with aura [Recovered/Resolved]
